FAERS Safety Report 14590479 (Version 1)
Quarter: 2018Q1

REPORT INFORMATION
  Report Type: Spontaneous
  Country: SE (occurrence: SE)
  Receive Date: 20180302
  Receipt Date: 20180302
  Transmission Date: 20180509
  Serious: Yes (Disabling)
  Sender: FDA-Public Use
  Company Number: PHHY2018SE033923

PATIENT
  Age: 71 Year
  Sex: Male
  Weight: 70 kg

DRUGS (1)
  1. ATORVASTATIN [Suspect]
     Active Substance: ATORVASTATIN
     Indication: PROPHYLAXIS
     Dosage: 20 MG, QD (1 TABLETT DAGLIGEN, ETT ?RS F?RBRUKNING)
     Route: 065
     Dates: start: 20161212, end: 20171208

REACTIONS (5)
  - Joint swelling [Recovering/Resolving]
  - Cognitive disorder [Recovered/Resolved]
  - Rash [Recovering/Resolving]
  - Neck pain [Recovering/Resolving]
  - Depressed mood [Recovered/Resolved]

NARRATIVE: CASE EVENT DATE: 20170101
